FAERS Safety Report 5060903-4 (Version None)
Quarter: 2006Q2

REPORT INFORMATION
  Report Type: 
  Country: None (occurrence: None)
  Receive Date: 20060630
  Receipt Date: 20050909
  Transmission Date: 20061013
  Serious: Yes (Other)
  Sender: FDA-Public Use
  Company Number: 2005126212

PATIENT
  Age: 38 Year
  Sex: Female
  Weight: 63.5036 kg

DRUGS (2)
  1. NICOTROL [Suspect]
     Indication: SMOKING CESSATION THERAPY
     Dosage: 5-16 CARTRIDGES DAILY, INHALATION
     Route: 055
     Dates: start: 20050819
  2. ESTRATEST HS (ESTROGENS ESTERFIED, METHYLTESTOSTERONE) [Concomitant]

REACTIONS (1)
  - DEPENDENCE [None]
